FAERS Safety Report 16462222 (Version 2)
Quarter: 2019Q3

REPORT INFORMATION
  Report Type: Spontaneous
  Country: JP (occurrence: JP)
  Receive Date: 20190621
  Receipt Date: 20190715
  Transmission Date: 20191004
  Serious: Yes (Other)
  Sender: FDA-Public Use
  Company Number: JP-KYOWAKIRIN-2019BKK009422

PATIENT

DRUGS (2)
  1. FARESTON [Suspect]
     Active Substance: TOREMIFENE CITRATE
     Dosage: UNKNOWN
     Route: 065
  2. FARESTON [Suspect]
     Active Substance: TOREMIFENE CITRATE
     Indication: BREAST CANCER
     Dosage: 40 MG, 1 IN 8 HR
     Route: 065
     Dates: start: 20190307

REACTIONS (6)
  - Musculoskeletal stiffness [Recovered/Resolved]
  - Meniere^s disease [Recovered/Resolved]
  - Decreased appetite [Recovered/Resolved]
  - Tension headache [Recovered/Resolved]
  - Weight decreased [Recovered/Resolved]
  - Fatigue [Unknown]

NARRATIVE: CASE EVENT DATE: 201903
